FAERS Safety Report 14516270 (Version 1)
Quarter: 2018Q1

REPORT INFORMATION
  Report Type: Spontaneous
  Country: BE (occurrence: BE)
  Receive Date: 20180211
  Receipt Date: 20180211
  Transmission Date: 20180509
  Serious: Yes (Other)
  Sender: FDA-Public Use
  Company Number: PHHY2018BE019833

PATIENT
  Age: 19 Year
  Sex: Female

DRUGS (3)
  1. OCTREOTIDE. [Suspect]
     Active Substance: OCTREOTIDE
     Indication: ACROMEGALY
     Dosage: UNK
     Route: 065
  2. PASIREOTIDE LAR [Suspect]
     Active Substance: PASIREOTIDE
     Dosage: 40 MG/4 WEEKS
     Route: 065
  3. PASIREOTIDE LAR [Suspect]
     Active Substance: PASIREOTIDE
     Indication: ACROMEGALY
     Dosage: UPTITRATED TO 60 MG/MONTH
     Route: 065

REACTIONS (2)
  - Insulin-like growth factor increased [Unknown]
  - Diabetes mellitus [Unknown]
